FAERS Safety Report 7811683-8 (Version None)
Quarter: 2011Q4

REPORT INFORMATION
  Report Type: 
  Country: None (occurrence: None)
  Receive Date: 20111013
  Receipt Date: 20111004
  Transmission Date: 20120403
  Serious: Yes (Hospitalization)
  Sender: FDA-Public Use
  Company Number: US-NOVOPROD-336533

PATIENT

DRUGS (2)
  1. VICTOZA [Suspect]
     Indication: OBESITY
     Dosage: UNK
     Route: 058
     Dates: start: 20110901, end: 20110922
  2. VICTOZA [Suspect]
     Indication: TYPE 2 DIABETES MELLITUS
     Dosage: UNK
     Route: 058
     Dates: start: 20110401, end: 20110603

REACTIONS (1)
  - PANCREATITIS ACUTE [None]
